FAERS Safety Report 8317375-3 (Version None)
Quarter: 2012Q2

REPORT INFORMATION
  Report Type: 
  Country: None (occurrence: None)
  Receive Date: 20120427
  Receipt Date: 20120417
  Transmission Date: 20120825
  Serious: Yes (Hospitalization)
  Sender: FDA-Public Use
  Company Number: US-JNJFOC-20120212520

PATIENT
  Sex: Female
  Weight: 78.1 kg

DRUGS (7)
  1. CHOLECALCIFEROL [Concomitant]
  2. SUCRALFATE [Concomitant]
  3. LANSOPRAZOLE [Concomitant]
  4. REMICADE [Suspect]
     Route: 042
     Dates: start: 20120201
  5. MERCAPTOPURINE [Suspect]
     Indication: PRODUCT USED FOR UNKNOWN INDICATION
  6. REMICADE [Suspect]
     Indication: CROHN'S DISEASE
     Route: 042
     Dates: start: 20091021
  7. DIPHENHYDRAMINE HCL [Concomitant]

REACTIONS (2)
  - GALLBLADDER DISORDER [None]
  - CROHN'S DISEASE [None]
